FAERS Safety Report 7194339-7 (Version None)
Quarter: 2010Q4

REPORT INFORMATION
  Report Type: 
  Country: None (occurrence: None)
  Receive Date: 20101223
  Receipt Date: 20101213
  Transmission Date: 20110411
  Serious: Yes (Other)
  Sender: FDA-Public Use
  Company Number: DE-ELI_LILLY_AND_COMPANY-DE201012002947

PATIENT
  Age: 44 Year
  Sex: Female

DRUGS (1)
  1. ZYPREXA [Suspect]
     Dosage: 10 MG, UNK
     Route: 048

REACTIONS (3)
  - ELECTROCARDIOGRAM ST SEGMENT ABNORMAL [None]
  - EXTRASYSTOLES [None]
  - VENTRICULAR EXTRASYSTOLES [None]
